FAERS Safety Report 6965325-4 (Version None)
Quarter: 2010Q3

REPORT INFORMATION
  Report Type: 
  Country: None (occurrence: None)
  Receive Date: 20100903
  Receipt Date: 20100825
  Transmission Date: 20110219
  Serious: Yes (Other)
  Sender: FDA-Public Use
  Company Number: US-JNJCH-2010019580

PATIENT
  Age: 52 Year
  Sex: Male
  Weight: 113.4 kg

DRUGS (1)
  1. ROGAINE [Suspect]
     Indication: ALOPECIA
     Dosage: TEXT:1 DROPPERFUL AS DIRECTED TWICE DAILY
     Route: 061
     Dates: start: 20100718, end: 20100825

REACTIONS (3)
  - APPLICATION SITE PAIN [None]
  - BLISTER [None]
  - EYE INFECTION [None]
